FAERS Safety Report 18857658 (Version 1)
Quarter: 2021Q1

REPORT INFORMATION
  Report Type: Spontaneous
  Country: US (occurrence: US)
  Receive Date: 20210208
  Receipt Date: 20210208
  Transmission Date: 20210420
  Serious: No
  Sender: FDA-Public Use
  Company Number: US-JNJFOC-20210206098

PATIENT
  Age: 71 Year
  Sex: Male
  Weight: 104.33 kg

DRUGS (1)
  1. TYLENOL [Suspect]
     Active Substance: ACETAMINOPHEN
     Indication: PROPHYLAXIS
     Route: 065

REACTIONS (1)
  - Product use in unapproved indication [Unknown]
